FAERS Safety Report 25365690 (Version 1)
Quarter: 2025Q2

REPORT INFORMATION
  Report Type: Report from Study
  Country: CA (occurrence: CA)
  Receive Date: 20250527
  Receipt Date: 20250527
  Transmission Date: 20250717
  Serious: Yes (Hospitalization)
  Sender: Alvotech
  Company Number: CA-JAMP PHARMA CORPORATION-2023-JAM-CA-00728

PATIENT
  Age: 58 Year
  Sex: Male

DRUGS (1)
  1. SIMLANDI [Suspect]
     Active Substance: ADALIMUMAB-RYVK
     Indication: Colitis ulcerative
     Dosage: 40 MG, WEEKLY
     Route: 058
     Dates: start: 20220508

REACTIONS (6)
  - Bacterial test positive [Unknown]
  - Impaired work ability [Unknown]
  - Arthralgia [Unknown]
  - Chills [Unknown]
  - Abdominal pain [Unknown]
  - Loss of therapeutic response [Unknown]
